FAERS Safety Report 8093120-4 (Version None)
Quarter: 2012Q1

REPORT INFORMATION
  Report Type: 
  Country: None (occurrence: None)
  Receive Date: 20120128
  Receipt Date: 20110907
  Transmission Date: 20120608
  Serious: No
  Sender: FDA-Public Use
  Company Number: US-ABBOTT-11P-163-0849893-00

PATIENT
  Sex: Male
  Weight: 98.518 kg

DRUGS (6)
  1. HUMIRA [Suspect]
     Dates: start: 20100101, end: 20110601
  2. HUMIRA [Suspect]
     Indication: CROHN'S DISEASE
     Dates: start: 20100101, end: 20100101
  3. MULTIPLE VITAMINS [Concomitant]
     Indication: VITAMIN SUPPLEMENTATION
  4. HUMIRA [Suspect]
     Dates: start: 20101101, end: 20101101
  5. HUMIRA [Suspect]
     Dates: start: 20110601
  6. APRISO [Concomitant]
     Indication: CROHN'S DISEASE

REACTIONS (4)
  - RECTAL HAEMORRHAGE [None]
  - NEURALGIA [None]
  - ARTHRALGIA [None]
  - PYREXIA [None]
